FAERS Safety Report 15037852 (Version 1)
Quarter: 2018Q2

REPORT INFORMATION
  Report Type: Spontaneous
  Country: US (occurrence: US)
  Receive Date: 20180620
  Receipt Date: 20180620
  Transmission Date: 20180711
  Serious: No
  Sender: FDA-Public Use
  Company Number: US-BEH-2018091878

PATIENT
  Sex: Male
  Weight: 122.45 kg

DRUGS (12)
  1. HAEGARDA [Suspect]
     Active Substance: HUMAN C1-ESTERASE INHIBITOR
     Indication: PROPHYLAXIS
     Dosage: UNK
     Route: 058
  2. EPINEPHRINE. [Concomitant]
     Active Substance: EPINEPHRINE
  3. SYNTHROID [Concomitant]
     Active Substance: LEVOTHYROXINE SODIUM
  4. STERILE WATER [Concomitant]
     Active Substance: WATER
  5. HAEGARDA [Suspect]
     Active Substance: HUMAN C1-ESTERASE INHIBITOR
     Dosage: UNK
     Route: 058
  6. ALEVE [Concomitant]
     Active Substance: NAPROXEN SODIUM
  7. HAEGARDA [Suspect]
     Active Substance: HUMAN C1-ESTERASE INHIBITOR
     Indication: HEREDITARY ANGIOEDEMA
     Dosage: 7020 IU, BIW
     Route: 058
     Dates: start: 20180521
  8. TYLENOL [Concomitant]
     Active Substance: ACETAMINOPHEN
  9. CLONAZEPAM. [Concomitant]
     Active Substance: CLONAZEPAM
  10. LITHIUM CARBONATE. [Concomitant]
     Active Substance: LITHIUM CARBONATE
  11. CARVEDILOL. [Concomitant]
     Active Substance: CARVEDILOL
  12. SODIUM CHLORIDE. [Concomitant]
     Active Substance: SODIUM CHLORIDE

REACTIONS (1)
  - Injection site mass [Recovered/Resolved]
